FAERS Safety Report 6252473-X (Version None)
Quarter: 2009Q2

REPORT INFORMATION
  Report Type: 
  Country: None (occurrence: None)
  Receive Date: 20090629
  Receipt Date: 20090629
  Transmission Date: 20091009
  Serious: Yes (Disabling)
  Sender: FDA-Public Use
  Company Number: None

PATIENT
  Sex: Female
  Weight: 58.9676 kg

DRUGS (2)
  1. ZICAM MATRIXX INITIATIVES INC. [Suspect]
     Indication: NASOPHARYNGITIS
     Dates: start: 20070101, end: 20070106
  2. ZICAM MATRIXX INITIATIVES INC. [Suspect]
     Indication: PROPHYLAXIS
     Dates: start: 20070101, end: 20070106

REACTIONS (1)
  - ANOSMIA [None]
